FAERS Safety Report 6078851-X (Version None)
Quarter: 2009Q1

REPORT INFORMATION
  Report Type: 
  Country: None (occurrence: None)
  Receive Date: 20090216
  Receipt Date: 20090209
  Transmission Date: 20090719
  Serious: Yes (Other)
  Sender: FDA-Public Use
  Company Number: PHEH2009US01535

PATIENT

DRUGS (1)
  1. SANDOSTATIN LAR [Suspect]

REACTIONS (3)
  - BLOOD CHROMOGRANIN A INCREASED [None]
  - BLOOD INSULIN DECREASED [None]
  - DIABETES MELLITUS [None]
